FAERS Safety Report 7000304-2 (Version None)
Quarter: 2010Q3

REPORT INFORMATION
  Report Type: 
  Country: None (occurrence: None)
  Receive Date: 20100920
  Receipt Date: 20100618
  Transmission Date: 20110219
  Serious: No
  Sender: FDA-Public Use
  Company Number: US-ASTRAZENECA-2010SE28626

PATIENT
  Age: 14902 Day
  Sex: Male
  Weight: 90.7 kg

DRUGS (1)
  1. SEROQUEL XR [Suspect]
     Indication: DEPRESSION
     Route: 048
     Dates: start: 20050101

REACTIONS (7)
  - CHILLS [None]
  - DRUG DOSE OMISSION [None]
  - DYSPNOEA [None]
  - INSOMNIA [None]
  - MYALGIA [None]
  - TREMOR [None]
  - VOMITING [None]
